FAERS Safety Report 10185355 (Version 1)
Quarter: 2014Q2

REPORT INFORMATION
  Report Type: Spontaneous
  Country: US (occurrence: US)
  Receive Date: 20140521
  Receipt Date: 20140521
  Transmission Date: 20141212
  Serious: No
  Sender: FDA-Public Use
  Company Number: US-AMGEN INC.-USASP2014029486

PATIENT
  Age: 70 Year
  Sex: Female

DRUGS (3)
  1. PROLIA [Suspect]
     Indication: PRODUCT USED FOR UNKNOWN INDICATION
     Dosage: UNK
     Route: 065
     Dates: start: 201311
  2. OMEPRAZOLE [Concomitant]
  3. VYTORIN [Concomitant]

REACTIONS (4)
  - Anxiety [Unknown]
  - Pain [Unknown]
  - Burning sensation [Unknown]
  - Mobility decreased [Unknown]
